FAERS Safety Report 10253836 (Version 1)
Quarter: 2014Q2

REPORT INFORMATION
  Report Type: Spontaneous
  Country: US (occurrence: US)
  Receive Date: 20140623
  Receipt Date: 20140623
  Transmission Date: 20141212
  Serious: No
  Sender: FDA-Public Use
  Company Number: US-ZOGENIX, INC.-2011ZX000568

PATIENT
  Sex: Female
  Weight: 83.08 kg

DRUGS (4)
  1. SUMAVEL DOSEPRO [Suspect]
     Indication: MIGRAINE
  2. NORCO [Concomitant]
     Indication: PAIN
     Route: 048
  3. DEPO ESTRADIOL [Concomitant]
     Indication: CONTRACEPTION
  4. AMBIEN [Concomitant]
     Indication: SLEEP DISORDER
     Route: 048

REACTIONS (4)
  - Application site burn [Recovered/Resolved]
  - Injection site pain [Recovered/Resolved]
  - Incorrect dose administered by device [Recovered/Resolved]
  - Drug administered at inappropriate site [Recovered/Resolved]
